FAERS Safety Report 4956241-8 (Version None)
Quarter: 2006Q1

REPORT INFORMATION
  Report Type: 
  Country: None (occurrence: None)
  Receive Date: 20060323
  Receipt Date: 20060306
  Transmission Date: 20060701
  Serious: Yes (Hospitalization, Other)
  Sender: FDA-Public Use
  Company Number: DE200602005149

PATIENT
  Age: 58 Year
  Sex: Female

DRUGS (8)
  1. CYMBALTA [Suspect]
     Dosage: 60 MG, DAILY (1/D), ORAL
     Route: 048
     Dates: start: 20060207, end: 20060207
  2. MARCUMAR [Concomitant]
  3. ANALGESICS [Concomitant]
  4. SIMVASTATIN [Concomitant]
  5. CARBIMAZOLE (CARBIMAZOLE) [Concomitant]
  6. DIPYRONE TAB [Concomitant]
  7. TOLPERISONE (TOLPERISONE) [Concomitant]
  8. BEROTEC (FENOTEROL HYDROBROMIDE) [Concomitant]

REACTIONS (11)
  - ALANINE AMINOTRANSFERASE INCREASED [None]
  - ASPARTATE AMINOTRANSFERASE INCREASED [None]
  - DIARRHOEA [None]
  - DYSKINESIA [None]
  - ELECTROCARDIOGRAM QT PROLONGED [None]
  - HYPERTENSIVE CRISIS [None]
  - INTERNATIONAL NORMALISED RATIO DECREASED [None]
  - NAUSEA [None]
  - SINUS BRADYCARDIA [None]
  - SYNCOPE [None]
  - VOMITING [None]
